FAERS Safety Report 9107910 (Version 1)
Quarter: 2013Q1

REPORT INFORMATION
  Report Type: Spontaneous
  Country: GB (occurrence: GB)
  Receive Date: 20130221
  Receipt Date: 20130221
  Transmission Date: 20140127
  Serious: Yes (Disabling, Other)
  Sender: FDA-Public Use
  Company Number: GB-UCBSA-078702

PATIENT
  Age: 66 Year
  Sex: Male
  Weight: 82 kg

DRUGS (2)
  1. NEUPRO [Suspect]
     Indication: PARKINSON^S DISEASE
     Dosage: DOSE: 2 MG
     Route: 062
     Dates: start: 201208, end: 201301
  2. STALEVO [Concomitant]
     Indication: PARKINSON^S DISEASE
     Dosage: DOSE 100 MG
     Route: 048

REACTIONS (3)
  - Skin exfoliation [Recovering/Resolving]
  - Urticaria [Recovering/Resolving]
  - Parkinson^s disease [Unknown]
